FAERS Safety Report 8116623-2 (Version None)
Quarter: 2012Q1

REPORT INFORMATION
  Report Type: 
  Country: None (occurrence: None)
  Receive Date: 20120206
  Receipt Date: 20120124
  Transmission Date: 20120608
  Serious: Yes (Hospitalization, Other)
  Sender: FDA-Public Use
  Company Number: PHHY2012DE007074

PATIENT
  Sex: Female

DRUGS (3)
  1. RAMIPRIL [Concomitant]
     Route: 048
     Dates: start: 20120101
  2. RASILEZ [Suspect]
     Dosage: 150 MG, QD
     Route: 048
     Dates: start: 20110801, end: 20120101
  3. AMLODIPINE [Concomitant]
     Route: 048
     Dates: start: 20120101

REACTIONS (6)
  - TOXICITY TO VARIOUS AGENTS [None]
  - GAMMA-GLUTAMYLTRANSFERASE INCREASED [None]
  - BLOOD BILIRUBIN INCREASED [None]
  - HEPATIC NECROSIS [None]
  - ASPARTATE AMINOTRANSFERASE INCREASED [None]
  - ALANINE AMINOTRANSFERASE INCREASED [None]
